FAERS Safety Report 9498508 (Version 2)
Quarter: 2013Q3

REPORT INFORMATION
  Report Type: Spontaneous
  Country: JP (occurrence: JP)
  Receive Date: 20130904
  Receipt Date: 20130904
  Transmission Date: 20140515
  Serious: Yes (Hospitalization)
  Sender: FDA-Public Use
  Company Number: JP-GLAXOSMITHKLINE-B0362036A

PATIENT
  Age: 72 Year
  Sex: Male
  Weight: 57 kg

DRUGS (8)
  1. VALTREX [Suspect]
     Indication: HERPES ZOSTER
     Dosage: 1000MG PER DAY
     Route: 048
     Dates: start: 20041207, end: 20041213
  2. LOPRESOR [Concomitant]
     Indication: HYPERTENSION
     Dosage: 40MG TWICE PER DAY
     Route: 048
  3. ADALAT-CR [Concomitant]
     Indication: HYPERTENSION
     Dosage: 2MG TWICE PER DAY
     Route: 048
  4. BLOPRESS [Concomitant]
     Indication: HYPERTENSION
     Dosage: 4MG PER DAY
     Route: 048
  5. HERBESSER R [Concomitant]
     Indication: HYPERTENSION
     Dosage: 100MG PER DAY
     Route: 048
  6. CARDENALIN [Concomitant]
     Indication: HYPERTENSION
     Dosage: 4MG PER DAY
     Route: 048
  7. CALTAN [Concomitant]
     Indication: RENAL FAILURE CHRONIC
     Dosage: 3000MG THREE TIMES PER DAY
     Route: 048
  8. SELBEX [Concomitant]
     Indication: GASTRITIS
     Dosage: .5G THREE TIMES PER DAY
     Route: 048

REACTIONS (8)
  - Asthenia [Recovered/Resolved]
  - Hypoaesthesia [Recovered/Resolved]
  - Dysarthria [Recovered/Resolved]
  - Diarrhoea [Recovered/Resolved]
  - Nervous system disorder [Unknown]
  - Fall [Unknown]
  - Speech disorder [Unknown]
  - Drug level increased [Unknown]
